FAERS Safety Report 18318408 (Version 1)
Quarter: 2020Q3

REPORT INFORMATION
  Report Type: Spontaneous
  Country: US (occurrence: US)
  Receive Date: 20200926
  Receipt Date: 20200926
  Transmission Date: 20201103
  Serious: No
  Sender: FDA-Public Use
  Company Number: None

PATIENT
  Age: 43 Year
  Sex: Male

DRUGS (1)
  1. DR. SCHOLLS ODOR?X FOOT AND SNEAKER [Suspect]
     Active Substance: TOLNAFTATE
     Indication: SKIN ODOUR ABNORMAL
     Route: 061
     Dates: end: 20200925

REACTIONS (2)
  - Alopecia [None]
  - Urticaria [None]

NARRATIVE: CASE EVENT DATE: 20170901
